FAERS Safety Report 16187096 (Version 1)
Quarter: 2019Q2

REPORT INFORMATION
  Report Type: Report from Study
  Country: KR (occurrence: KR)
  Receive Date: 20190411
  Receipt Date: 20190411
  Transmission Date: 20190711
  Serious: Yes (Hospitalization, Other)
  Sender: FDA-Public Use
  Company Number: KR-BRISTOL-MYERS SQUIBB COMPANY-BMS-2019-035248

PATIENT
  Age: 54 Year
  Sex: Male
  Weight: 62.8 kg

DRUGS (9)
  1. NIVOLUMAB [Suspect]
     Active Substance: NIVOLUMAB
     Indication: NON-SMALL CELL LUNG CANCER
     Dosage: 1 DOSAGE FORM IS 188 UNIT UNSPECIFIED
     Route: 042
  2. SPATAM [Concomitant]
     Indication: PNEUMONIA
     Dosage: 900 MILLIGRAM
     Route: 042
     Dates: start: 20160524, end: 20160914
  3. CRESTOR [Concomitant]
     Active Substance: ROSUVASTATIN CALCIUM
     Indication: HYPERLIPIDAEMIA
     Dosage: 5 MILLIGRAM
     Route: 048
     Dates: start: 20160512, end: 20160608
  4. ALLOPURINOL. [Concomitant]
     Active Substance: ALLOPURINOL
     Indication: GOUT
     Dosage: 50 MILLIGRAM
     Route: 048
     Dates: start: 20130116
  5. BOLGRE [Concomitant]
     Indication: ANAEMIA
     Dosage: 20 MILLILITER
     Route: 048
     Dates: start: 20160406
  6. PREDISOL                           /00049601/ [Concomitant]
     Indication: PNEUMONIA
     Dosage: 60 MILLIGRAM
     Route: 042
     Dates: start: 20160525
  7. TAZOPERAN [Concomitant]
     Indication: PNEUMONIA
     Dosage: 4.5 GRAM
     Route: 042
     Dates: start: 20160525
  8. ERDOS [Concomitant]
     Active Substance: ERDOSTEINE
     Indication: PNEUMONIA
     Dosage: 900 MILLIGRAM
     Route: 048
     Dates: start: 20160524
  9. CODEINE PHOSPHATE [Concomitant]
     Active Substance: CODEINE PHOSPHATE
     Indication: PNEUMONIA
     Dosage: 80 MILLIGRAM
     Route: 048
     Dates: start: 20160524, end: 20160609

REACTIONS (1)
  - Pneumonia [Recovered/Resolved]

NARRATIVE: CASE EVENT DATE: 20160524
